FAERS Safety Report 5653841-7 (Version None)
Quarter: 2008Q1

REPORT INFORMATION
  Report Type: 
  Country: None (occurrence: None)
  Receive Date: 20080306
  Receipt Date: 20080219
  Transmission Date: 20080703
  Serious: Yes (Death)
  Sender: FDA-Public Use
  Company Number: IT-GENENTECH-256356

PATIENT
  Sex: Male
  Weight: 69 kg

DRUGS (4)
  1. BEVACIZUMAB [Suspect]
     Indication: NON-SMALL CELL LUNG CANCER
     Dosage: UNK, Q3W
     Route: 042
     Dates: start: 20060428, end: 20061020
  2. CISPLATIN [Suspect]
     Indication: NON-SMALL CELL LUNG CANCER
     Dosage: 140 MG/M2, Q3W
     Route: 042
     Dates: start: 20060428
  3. GEMCITABINE [Suspect]
     Indication: NON-SMALL CELL LUNG CANCER
     Dosage: 2200 MG/M2, DAY1+8/Q3W
     Route: 042
     Dates: start: 20060428
  4. HEPARIN [Concomitant]
     Indication: PULMONARY EMBOLISM
     Dosage: UNK, UNK
     Dates: start: 20061030

REACTIONS (2)
  - DEATH [None]
  - PULMONARY EMBOLISM [None]
